FAERS Safety Report 17295075 (Version 1)
Quarter: 2020Q1

REPORT INFORMATION
  Report Type: Spontaneous
  Country: US (occurrence: US)
  Receive Date: 20200121
  Receipt Date: 20200121
  Transmission Date: 20200409
  Serious: Yes (Other)
  Sender: FDA-Public Use
  Company Number: US-MYLANLABS-2020M1005715

PATIENT
  Age: 58 Year
  Sex: Female

DRUGS (4)
  1. AFATINIB [Suspect]
     Active Substance: AFATINIB
     Indication: LUNG ADENOCARCINOMA
     Dosage: UNK
     Route: 065
  2. ERLOTINIB [Suspect]
     Active Substance: ERLOTINIB
     Indication: LUNG ADENOCARCINOMA
     Dosage: UNK
     Route: 065
  3. CARBOPLATIN. [Concomitant]
     Active Substance: CARBOPLATIN
     Indication: LUNG ADENOCARCINOMA
     Dosage: INITIALLY 6 CYCLES
     Route: 065
  4. PEMETREXED. [Concomitant]
     Active Substance: PEMETREXED
     Indication: LUNG ADENOCARCINOMA
     Dosage: 6 CYCLES
     Route: 065

REACTIONS (4)
  - Drug resistance [Unknown]
  - Small cell carcinoma [Unknown]
  - Neuroendocrine carcinoma [Unknown]
  - Malignant transformation [Unknown]
